FAERS Safety Report 4549358-3 (Version None)
Quarter: 2005Q1

REPORT INFORMATION
  Report Type: 
  Country: None (occurrence: None)
  Receive Date: 20050110
  Receipt Date: 20050110
  Transmission Date: 20050727
  Serious: Yes (Other)
  Sender: FDA-Public Use
  Company Number: None

PATIENT
  Sex: Male

DRUGS (21)
  1. CORRECTOL [Suspect]
     Indication: CONSTIPATION
     Dosage: ORAL
     Route: 048
  2. FEEN-A-MINT NO DOSE FORM [Suspect]
     Indication: CONSTIPATION
     Dosage: UNKNOWN
     Route: 065
  3. EX-LAX TABLETS [Suspect]
     Indication: CONSTIPATION
     Dosage: ORAL
     Route: 048
  4. DULCOLAX [Suspect]
     Indication: CONSTIPATION
     Dosage: ORAL
     Route: 048
  5. FUROSEMIDE [Concomitant]
  6. LIPITOR [Concomitant]
  7. VIAGRA [Concomitant]
  8. ALTACE [Concomitant]
  9. LOTENSIN [Concomitant]
  10. VANCENASE [Concomitant]
  11. GLUCOTROL XL [Concomitant]
  12. NITROGLYCERIN [Concomitant]
  13. ASPIRIN [Concomitant]
  14. CENTRUM [Concomitant]
  15. ANUSOL HC [Concomitant]
  16. MAXZIDE [Concomitant]
  17. ZYRTEC [Concomitant]
  18. DAYPRO [Concomitant]
  19. PEPCID [Concomitant]
  20. ZOSTRIX [Concomitant]
  21. EXTRA STRENGTH TYLENOL [Concomitant]

REACTIONS (6)
  - DEHYDRATION [None]
  - DIARRHOEA [None]
  - DRUG DEPENDENCE [None]
  - ELECTROLYTE IMBALANCE [None]
  - LAXATIVE ABUSE [None]
  - RECTAL HAEMORRHAGE [None]
